FAERS Safety Report 22386822 (Version 1)
Quarter: 2023Q2

REPORT INFORMATION
  Report Type: Spontaneous
  Country: US (occurrence: US)
  Receive Date: 20230531
  Receipt Date: 20230531
  Transmission Date: 20230722
  Serious: Yes (Other)
  Sender: FDA-Public Use
  Company Number: US-AUROBINDO-AUR-APL-2023-038787

PATIENT
  Age: 14 Year
  Sex: Female

DRUGS (2)
  1. AMPHETAMINE\DEXTROAMPHETAMINE [Suspect]
     Active Substance: AMPHETAMINE\DEXTROAMPHETAMINE
     Indication: Product used for unknown indication
     Dosage: 400 MILLIGRAM,TOTAL
     Route: 048
  2. LORAZEPAM [Concomitant]
     Active Substance: LORAZEPAM
     Indication: Product used for unknown indication
     Dosage: 1.5 MILLIGRAM, TOTAL
     Route: 065

REACTIONS (7)
  - Posterior reversible encephalopathy syndrome [Recovered/Resolved]
  - Toxicity to various agents [Recovered/Resolved]
  - Vomiting [Recovered/Resolved]
  - Headache [Recovered/Resolved]
  - Mydriasis [Recovered/Resolved]
  - Confusional state [Recovered/Resolved]
  - Intentional overdose [Recovered/Resolved]
